FAERS Safety Report 4885941-3 (Version None)
Quarter: 2006Q1

REPORT INFORMATION
  Report Type: 
  Country: None (occurrence: None)
  Receive Date: 20060118
  Receipt Date: 20060105
  Transmission Date: 20060701
  Serious: Yes (Life-Threatening)
  Sender: FDA-Public Use
  Company Number: US200601000809

PATIENT
  Age: 10 Year
  Sex: Female
  Weight: 38.5 kg

DRUGS (5)
  1. HUMALOG [Suspect]
     Indication: DIABETES MELLITUS INSULIN-DEPENDENT
     Dosage: AS NEEDED
     Dates: start: 20041101
  2. HUMALOG [Suspect]
  3. HUMULIN N [Suspect]
     Indication: DIABETES MELLITUS INSULIN-DEPENDENT
     Dosage: 9 U, 2/D
     Dates: start: 20041101, end: 20041201
  4. HUMULIN N [Suspect]
     Indication: DIABETES MELLITUS INSULIN-DEPENDENT
     Dosage: 9 U, 2/D
     Dates: start: 20050801
  5. LANTUS [Concomitant]

REACTIONS (12)
  - ANAPHYLACTIC REACTION [None]
  - ANOREXIA [None]
  - ASTHMA [None]
  - DEVICE FAILURE [None]
  - DEVICE MALFUNCTION [None]
  - DIABETES MELLITUS INADEQUATE CONTROL [None]
  - HEART RATE INCREASED [None]
  - INSOMNIA [None]
  - MULTIPLE ALLERGIES [None]
  - MYCOTIC ALLERGY [None]
  - PHARMACEUTICAL PRODUCT COMPLAINT [None]
  - WRONG TECHNIQUE IN DRUG USAGE PROCESS [None]
